FAERS Safety Report 12983827 (Version 1)
Quarter: 2016Q4

REPORT INFORMATION
  Report Type: Spontaneous
  Country: US (occurrence: US)
  Receive Date: 20161129
  Receipt Date: 20161129
  Transmission Date: 20170207
  Serious: No
  Sender: FDA-Public Use
  Company Number: US-ENDO PHARMACEUTICALS INC.-2015-004883

PATIENT
  Age: 30 Year
  Sex: Male
  Weight: 81.72 kg

DRUGS (1)
  1. TESTIM [Suspect]
     Active Substance: TESTOSTERONE
     Indication: HORMONE REPLACEMENT THERAPY
     Route: 065
     Dates: start: 20151111

REACTIONS (2)
  - Product odour abnormal [Unknown]
  - Urine alcohol test positive [Unknown]

NARRATIVE: CASE EVENT DATE: 20151111
